FAERS Safety Report 5715241-0 (Version None)
Quarter: 2008Q2

REPORT INFORMATION
  Report Type: 
  Country: None (occurrence: None)
  Receive Date: 20080422
  Receipt Date: 20080409
  Transmission Date: 20081010
  Serious: Yes (Other)
  Sender: FDA-Public Use
  Company Number: 2008-175302-NL

PATIENT
  Age: 21 Year
  Sex: Female
  Weight: 76.7 kg

DRUGS (2)
  1. IMPLANON [Suspect]
     Indication: CONTRACEPTION
     Dosage: SUBDERMAL
     Route: 059
     Dates: start: 20080401
  2. LEVAQUIN [Concomitant]

REACTIONS (5)
  - CHEST PAIN [None]
  - HYPOAESTHESIA [None]
  - NAUSEA [None]
  - PAIN IN EXTREMITY [None]
  - SKIN BURNING SENSATION [None]
